FAERS Safety Report 7428892-2 (Version None)
Quarter: 2011Q2

REPORT INFORMATION
  Report Type: 
  Country: None (occurrence: None)
  Receive Date: 20110415
  Receipt Date: 20110415
  Transmission Date: 20111010
  Serious: Yes (Other)
  Sender: FDA-Public Use
  Company Number: None

PATIENT
  Age: 45 Year
  Sex: Female
  Weight: 92.9874 kg

DRUGS (3)
  1. CYCLOSPORINE [Concomitant]
  2. TAXOL [Suspect]
     Indication: BREAST CANCER
     Dosage: 330 MG EVERY 3 WEEKS X 4 IV DRIP
     Route: 041
     Dates: start: 19951115, end: 19960117
  3. ADRIAMYCIN PFS [Concomitant]

REACTIONS (1)
  - METASTASES TO LYMPH NODES [None]
